FAERS Safety Report 25504781 (Version 1)
Quarter: 2025Q3

REPORT INFORMATION
  Report Type: Spontaneous
  Country: US (occurrence: US)
  Receive Date: 20250702
  Receipt Date: 20250702
  Transmission Date: 20251021
  Serious: No
  Sender: MYLAN
  Company Number: US-MYLANLABS-2025M1054465

PATIENT
  Sex: Female
  Weight: 70.31 kg

DRUGS (1)
  1. GABAPENTIN [Suspect]
     Active Substance: GABAPENTIN
     Indication: Diabetic neuropathy
     Dosage: 1800 MILLIGRAM, QD (TAKE TWO IN THE MORNING, ONE MIDDLE OF DAY AND THREE AT NIGHT)

REACTIONS (1)
  - Off label use [Unknown]
